FAERS Safety Report 15810659 (Version 2)
Quarter: 2021Q1

REPORT INFORMATION
  Report Type: Spontaneous
  Country: US (occurrence: US)
  Receive Date: 20190111
  Receipt Date: 20210115
  Transmission Date: 20210419
  Serious: No
  Sender: FDA-Public Use
  Company Number: US-ROCHE-2075018

PATIENT

DRUGS (1)
  1. RITUXAN [Suspect]
     Active Substance: RITUXIMAB
     Indication: PRODUCT USED FOR UNKNOWN INDICATION
     Dosage: 100 MG VIAL, TOTAL 10 VIALS
     Route: 042

REACTIONS (2)
  - Nasopharyngitis [Unknown]
  - Product container issue [Unknown]

NARRATIVE: CASE EVENT DATE: 20180123
